FAERS Safety Report 4622535-9 (Version None)
Quarter: 2005Q1

REPORT INFORMATION
  Report Type: 
  Country: None (occurrence: None)
  Receive Date: 20050317
  Receipt Date: 20040606
  Transmission Date: 20050727
  Serious: Yes (Other)
  Sender: FDA-Public Use
  Company Number: PHEH2004US06494

PATIENT
  Age: 75 Year
  Sex: Male

DRUGS (2)
  1. TRILEPTAL [Suspect]
     Indication: FACIAL SPASM
     Dosage: 300 MG, BID ORAL
     Route: 048
     Dates: start: 20030805, end: 20040501
  2. EXELON [Concomitant]

REACTIONS (1)
  - HYPONATRAEMIA [None]
